FAERS Safety Report 25388069 (Version 1)
Quarter: 2025Q2

REPORT INFORMATION
  Report Type: Spontaneous
  Country: US (occurrence: US)
  Receive Date: 20250603
  Receipt Date: 20250603
  Transmission Date: 20250717
  Serious: No
  Sender: Steriscience PTE
  Company Number: US-STERISCIENCE B.V.-2025-ST-000736

PATIENT
  Age: 52 Year
  Sex: Female

DRUGS (3)
  1. METHYLENE BLUE [Suspect]
     Active Substance: METHYLENE BLUE
     Indication: Methaemoglobinaemia
     Route: 065
  2. HYDROXYCHLOROQUINE [Concomitant]
     Active Substance: HYDROXYCHLOROQUINE
     Indication: Systemic lupus erythematosus
     Route: 065
  3. BENZOCAINE [Concomitant]
     Indication: Local anaesthesia
     Route: 065

REACTIONS (1)
  - Oxygen saturation decreased [Unknown]
